FAERS Safety Report 6861255-7 (Version None)
Quarter: 2010Q3

REPORT INFORMATION
  Report Type: 
  Country: None (occurrence: None)
  Receive Date: 20100720
  Receipt Date: 20100419
  Transmission Date: 20110219
  Serious: Yes (Other)
  Sender: FDA-Public Use
  Company Number: SE-BAXTER-2010BH018018

PATIENT
  Sex: Female

DRUGS (3)
  1. SODIUM CHLORIDE 0.9% IN PLASTIC CONTAINER [Suspect]
     Indication: MEDICATION DILUTION
     Route: 008
     Dates: start: 20100417, end: 20100417
  2. BUPIVACAINE HCL [Suspect]
     Indication: PAIN
     Route: 008
     Dates: start: 20100417
  3. SUFENTANIL [Suspect]
     Indication: PAIN
     Route: 008
     Dates: start: 20100417, end: 20100417

REACTIONS (6)
  - BLOOD PRESSURE DECREASED [None]
  - DIZZINESS [None]
  - DRUG EFFECT INCREASED [None]
  - FATIGUE [None]
  - INCORRECT ROUTE OF DRUG ADMINISTRATION [None]
  - NAUSEA [None]
